FAERS Safety Report 23542386 (Version 3)
Quarter: 2024Q2

REPORT INFORMATION
  Report Type: Spontaneous
  Country: FR (occurrence: FR)
  Receive Date: 20240220
  Receipt Date: 20240409
  Transmission Date: 20240715
  Serious: Yes (Other)
  Sender: FDA-Public Use
  Company Number: FR-GRUNENTHAL-2024-114734

PATIENT
  Age: 79 Year
  Sex: Female

DRUGS (2)
  1. ASPERCREME LIDOCAINE NO-MESS PLUS LAVENDER [Suspect]
     Active Substance: LIDOCAINE HYDROCHLORIDE
     Indication: Back pain
     Dosage: UNK, BID
     Route: 061
     Dates: end: 20240116
  2. TRAMADOL HYDROCHLORIDE [Suspect]
     Active Substance: TRAMADOL HYDROCHLORIDE
     Indication: Back pain
     Dosage: UNK
     Route: 065
     Dates: end: 20240121

REACTIONS (7)
  - Burns second degree [Unknown]
  - Oral pain [Recovered/Resolved]
  - Herpes zoster [Unknown]
  - Dermatitis allergic [Unknown]
  - Muscle spasms [Recovered/Resolved]
  - Pyrexia [Recovered/Resolved]
  - Application site burn [Not Recovered/Not Resolved]

NARRATIVE: CASE EVENT DATE: 20240101
